FAERS Safety Report 12838281 (Version 1)
Quarter: 2016Q4

REPORT INFORMATION
  Report Type: Spontaneous
  Country: US (occurrence: US)
  Receive Date: 20161010
  Receipt Date: 20161010
  Transmission Date: 20170207
  Serious: Yes (Hospitalization)
  Sender: FDA-Public Use
  Company Number: None

PATIENT
  Age: 71 Year
  Sex: Male
  Weight: 77.1 kg

DRUGS (13)
  1. CLONIDINE. [Concomitant]
     Active Substance: CLONIDINE
  2. LIDOCAINE. [Concomitant]
     Active Substance: LIDOCAINE
  3. CALCIUM ACETATE. [Concomitant]
     Active Substance: CALCIUM ACETATE
  4. NIFEDICAL XL [Concomitant]
     Active Substance: NIFEDIPINE
  5. ASPIRIN. [Concomitant]
     Active Substance: ASPIRIN
  6. AMBIEN [Concomitant]
     Active Substance: ZOLPIDEM TARTRATE
  7. ZEPATIER [Suspect]
     Active Substance: ELBASVIR\GRAZOPREVIR
     Indication: HEPATITIS C
     Dosage: 50MG/100MG QD ORAL
     Route: 048
     Dates: start: 20160616, end: 20160909
  8. JANUVIA [Concomitant]
     Active Substance: SITAGLIPTIN PHOSPHATE
  9. ZIAGEN [Concomitant]
     Active Substance: ABACAVIR SULFATE
  10. PRAVASTATIN. [Concomitant]
     Active Substance: PRAVASTATIN
  11. EPIVIR [Concomitant]
     Active Substance: LAMIVUDINE
  12. LABETALOL [Concomitant]
     Active Substance: LABETALOL\LABETALOL HYDROCHLORIDE
  13. ISENTRESS [Concomitant]
     Active Substance: RALTEGRAVIR POTASSIUM

REACTIONS (1)
  - Transient ischaemic attack [None]

NARRATIVE: CASE EVENT DATE: 20160908
